FAERS Safety Report 8522693-X (Version None)
Quarter: 2012Q3

REPORT INFORMATION
  Report Type: 
  Country: None (occurrence: None)
  Receive Date: 20120719
  Receipt Date: 20120713
  Transmission Date: 20120928
  Serious: Yes (Life-Threatening, Hospitalization)
  Sender: FDA-Public Use
  Company Number: US-GLAXOSMITHKLINE-A0984449A

PATIENT
  Age: 73 Year
  Sex: Male

DRUGS (7)
  1. COUMADIN [Suspect]
     Indication: PRODUCT USED FOR UNKNOWN INDICATION
     Route: 065
  2. DIGOXIN [Concomitant]
  3. ZOVIRAX [Concomitant]
  4. PREDNISONE [Concomitant]
  5. BACTROBAN [Concomitant]
  6. OMEPRAZOLE [Concomitant]
  7. VALACYCLOVIR HYDROCHLORIDE [Suspect]
     Indication: PRODUCT USED FOR UNKNOWN INDICATION
     Dosage: 500MG TWICE PER DAY
     Route: 048
     Dates: start: 20120617, end: 20120623

REACTIONS (3)
  - GENERAL PHYSICAL HEALTH DETERIORATION [None]
  - DRUG INTERACTION [None]
  - INTERNATIONAL NORMALISED RATIO INCREASED [None]
